FAERS Safety Report 4402769-9 (Version None)
Quarter: 2004Q3

REPORT INFORMATION
  Report Type: 
  Country: None (occurrence: None)
  Receive Date: 20040720
  Receipt Date: 20040720
  Transmission Date: 20050211
  Serious: No
  Sender: FDA-Public Use
  Company Number: None

PATIENT
  Sex: Male
  Weight: 106.1417 kg

DRUGS (9)
  1. ABILIFY [Suspect]
     Indication: PSYCHOTIC DISORDER
     Dosage: 20 MG QAM ORAL
     Route: 048
     Dates: start: 20040713, end: 20040719
  2. BUPROPION HCL [Concomitant]
  3. CELEXA [Concomitant]
  4. ZYPREXA [Concomitant]
  5. HYDROCHLOROTHIAZIDE [Concomitant]
  6. ATIVAN [Concomitant]
  7. METOPROLOL TARTRATE [Concomitant]
  8. M.V.I. [Concomitant]
  9. TRAZODONE HCL [Concomitant]

REACTIONS (5)
  - HALLUCINATIONS, MIXED [None]
  - ILLUSION [None]
  - MOOD ALTERED [None]
  - SELF-INJURIOUS IDEATION [None]
  - VISUAL FIELD DEFECT [None]
